APPROVED DRUG PRODUCT: PREGABALIN
Active Ingredient: PREGABALIN
Strength: 50MG
Dosage Form/Route: CAPSULE;ORAL
Application: A215755 | Product #002 | TE Code: AB
Applicant: STRIDES PHARMA GLOBAL PTE LTD
Approved: Apr 26, 2023 | RLD: No | RS: No | Type: RX